FAERS Safety Report 15532210 (Version 16)
Quarter: 2019Q4

REPORT INFORMATION
  Report Type: Spontaneous
  Country: CA (occurrence: CA)
  Receive Date: 20181019
  Receipt Date: 20191226
  Transmission Date: 20200122
  Serious: Yes (Other)
  Sender: FDA-Public Use
  Company Number: CA-CELLTRION INC.-2017CA003181

PATIENT

DRUGS (32)
  1. INFLECTRA [Suspect]
     Active Substance: INFLIXIMAB-DYYB
     Dosage: 240 MG, (EVERY 6 WEEKS)
     Route: 042
     Dates: start: 20180531
  2. INFLECTRA [Suspect]
     Active Substance: INFLIXIMAB-DYYB
     Dosage: 240 MG, (EVERY 5 WEEKS) FOR 2 DOSES THEN REASSESS
     Route: 042
     Dates: start: 20180420
  3. INFLECTRA [Suspect]
     Active Substance: INFLIXIMAB-DYYB
     Dosage: 240 MG, (EVERY 6 WEEKS)
     Route: 042
     Dates: start: 20190307
  4. INFLECTRA [Suspect]
     Active Substance: INFLIXIMAB-DYYB
     Dosage: 240 MG, (EVERY 6 WEEKS)
     Route: 042
     Dates: start: 20180823
  5. INFLECTRA [Suspect]
     Active Substance: INFLIXIMAB-DYYB
     Dosage: 240 MG, (EVERY 6 WEEKS)
     Route: 042
     Dates: start: 20181116
  6. INFLECTRA [Suspect]
     Active Substance: INFLIXIMAB-DYYB
     Dosage: 240 MG, (EVERY 6 WEEKS)
     Route: 042
     Dates: start: 20190125
  7. INFLECTRA [Suspect]
     Active Substance: INFLIXIMAB-DYYB
     Dosage: 240 MG, (EVERY 5 WEEKS)
     Route: 042
     Dates: start: 20190618
  8. INFLECTRA [Suspect]
     Active Substance: INFLIXIMAB-DYYB
     Dosage: 240 MG, (EVERY 5 WEEKS)
     Route: 042
     Dates: start: 20191002
  9. INFLECTRA [Suspect]
     Active Substance: INFLIXIMAB-DYYB
     Dosage: 228 MG EVERY 6 WEEKS
     Route: 042
     Dates: start: 20180306, end: 20180306
  10. INFLECTRA [Suspect]
     Active Substance: INFLIXIMAB-DYYB
     Dosage: 240 MG, (EVERY 6 WEEKS)
     Route: 042
     Dates: start: 20190515
  11. INFLECTRA [Suspect]
     Active Substance: INFLIXIMAB-DYYB
     Dosage: 240 MG, (EVERY 5 WEEKS)
     Route: 042
     Dates: start: 20191105
  12. PREDNISONE. [Concomitant]
     Active Substance: PREDNISONE
     Indication: RHEUMATOID ARTHRITIS
     Dosage: UNK
     Route: 065
     Dates: start: 20180602
  13. INFLECTRA [Suspect]
     Active Substance: INFLIXIMAB-DYYB
     Dosage: 228 MG, THEN EVERY 8 WEEKS
     Route: 042
  14. INFLECTRA [Suspect]
     Active Substance: INFLIXIMAB-DYYB
     Dosage: 228 MG EVERY 6 WEEKS
     Route: 042
     Dates: start: 20180130
  15. INFLECTRA [Suspect]
     Active Substance: INFLIXIMAB-DYYB
     Dosage: 240 MG, (EVERY 6 WEEKS 5 WEEKS FOR 2 DOSES THEN REASSESS)
     Route: 042
     Dates: start: 20180410
  16. INFLECTRA [Suspect]
     Active Substance: INFLIXIMAB-DYYB
     Dosage: 240 MG, (EVERY 5 WEEKS)
     Route: 042
     Dates: start: 20191212
  17. MELOXICAM. [Concomitant]
     Active Substance: MELOXICAM
     Dosage: UNK
     Route: 065
  18. INFLECTRA [Suspect]
     Active Substance: INFLIXIMAB-DYYB
     Dosage: 300 MG
     Route: 042
  19. INFLECTRA [Suspect]
     Active Substance: INFLIXIMAB-DYYB
     Dosage: 240 MG, (Q 5 WEEKS FOR 2 DOSES THEN REASSESS)
     Route: 042
     Dates: start: 20180420, end: 20180531
  20. INFLECTRA [Suspect]
     Active Substance: INFLIXIMAB-DYYB
     Dosage: 240 MG, (EVERY 6 WEEKS)
     Route: 042
     Dates: start: 20180710, end: 20190515
  21. INFLECTRA [Suspect]
     Active Substance: INFLIXIMAB-DYYB
     Dosage: 240 MG, (EVERY 6 WEEKS)
     Route: 042
     Dates: start: 20190410
  22. INFLECTRA [Suspect]
     Active Substance: INFLIXIMAB-DYYB
     Dosage: 240 MG, (EVERY 5 WEEKS)
     Route: 042
     Dates: start: 20190829
  23. INFLECTRA [Suspect]
     Active Substance: INFLIXIMAB-DYYB
     Indication: RHEUMATOID ARTHRITIS
     Dosage: 207 EVERY 0, 2, 6 WEEKS THEN EVERY 8 WEEKS FOR 11 MONTHS
     Route: 042
  24. INFLECTRA [Suspect]
     Active Substance: INFLIXIMAB-DYYB
     Dosage: 228 MG THEN EVERY 8 WEEKS
     Route: 042
     Dates: start: 20160726, end: 20180123
  25. INFLECTRA [Suspect]
     Active Substance: INFLIXIMAB-DYYB
     Dosage: 672 MG EVERY 0, 2, 6 WEEKS THEN EVERY 8 WEEKS FOR 11 MONTHS
     Route: 042
     Dates: start: 20170402
  26. INFLECTRA [Suspect]
     Active Substance: INFLIXIMAB-DYYB
     Dosage: 228 MG EVERY 6 WEEKS
     Route: 042
     Dates: start: 20180123, end: 20180123
  27. INFLECTRA [Suspect]
     Active Substance: INFLIXIMAB-DYYB
     Dosage: 240 MG, (EVERY 6 WEEKS)
     Route: 042
     Dates: start: 20181221
  28. INFLECTRA [Suspect]
     Active Substance: INFLIXIMAB-DYYB
     Dosage: 240 MG, (EVERY 6 WEEKS)
     Route: 042
     Dates: start: 20181005
  29. INFLECTRA [Suspect]
     Active Substance: INFLIXIMAB-DYYB
     Dosage: 240 MG, (EVERY 5 WEEKS)
     Route: 042
     Dates: start: 20190619
  30. INFLECTRA [Suspect]
     Active Substance: INFLIXIMAB-DYYB
     Dosage: 240 MG, (EVERY 5 WEEKS)
     Route: 042
     Dates: start: 20190724
  31. ACETAMINOPHEN. [Concomitant]
     Active Substance: ACETAMINOPHEN
     Dosage: 650 MG, UNK
     Route: 048
     Dates: start: 20181221, end: 20181221
  32. DIPHENHYDRAMINE. [Concomitant]
     Active Substance: DIPHENHYDRAMINE
     Dosage: 25 MG, UNK
     Route: 048
     Dates: start: 20181221, end: 20181221

REACTIONS (15)
  - Blood pressure increased [Unknown]
  - Heart rate irregular [Unknown]
  - Infusion site bruising [Unknown]
  - Off label use [Unknown]
  - Gout [Unknown]
  - Musculoskeletal stiffness [Not Recovered/Not Resolved]
  - Incorrect dose administered [Unknown]
  - Visual impairment [Unknown]
  - Weight decreased [Unknown]
  - Cataract [Unknown]
  - Therapeutic response shortened [Unknown]
  - Weight increased [Unknown]
  - Myalgia [Unknown]
  - Inappropriate schedule of product administration [Unknown]
  - Blood pressure fluctuation [Unknown]

NARRATIVE: CASE EVENT DATE: 20170215
